FAERS Safety Report 7029703-X (Version None)
Quarter: 2010Q4

REPORT INFORMATION
  Report Type: 
  Country: None (occurrence: None)
  Receive Date: 20101005
  Receipt Date: 20101005
  Transmission Date: 20110411
  Serious: Yes (Life-Threatening, Hospitalization)
  Sender: FDA-Public Use
  Company Number: None

PATIENT
  Sex: Male

DRUGS (21)
  1. RESTASIS [Suspect]
     Indication: PROPHYLAXIS AGAINST GRAFT VERSUS HOST DISEASE
     Dosage: 1 DROP EACH EYE TWICE DAILY SUBCONJUNCTIVAL
     Route: 057
     Dates: start: 20100202, end: 20100928
  2. PREDNISONE [Concomitant]
  3. BACTRIM [Concomitant]
  4. AZITHROMYCIN [Concomitant]
  5. FLOVENT [Concomitant]
  6. VALACYCLOVIR [Concomitant]
  7. SIROLIMUS [Concomitant]
  8. SINGULAIR [Concomitant]
  9. POSACONAZOLE [Concomitant]
  10. LISINOPRIL [Concomitant]
  11. LEXAPRO [Concomitant]
  12. METOPROLOL TARTRATE [Concomitant]
  13. PROTONIX [Concomitant]
  14. MULTIVITAMIN WITHOUT IRON [Concomitant]
  15. FENOFIBRATE [Concomitant]
  16. CLARITIN [Concomitant]
  17. MAGNESIUM [Concomitant]
  18. ALBUTEROL [Concomitant]
  19. ASPIRIN [Concomitant]
  20. LIPITOR [Concomitant]
  21. CALCIUM CITRATE PLUS D [Concomitant]

REACTIONS (1)
  - CONDITION AGGRAVATED [None]
